FAERS Safety Report 10952330 (Version 1)
Quarter: 2015Q1

REPORT INFORMATION
  Report Type: Spontaneous
  Country: US (occurrence: None)
  Receive Date: 20150226
  Receipt Date: 20150226
  Transmission Date: 20150721
  Serious: Yes (Other)
  Sender: FDA-Public Use
  Company Number: TPA2012A02118

PATIENT
  Age: 74 Year
  Sex: Male
  Weight: 106.6 kg

DRUGS (2)
  1. DIABETA [Concomitant]
     Active Substance: GLYBURIDE
  2. ACTOS [Suspect]
     Active Substance: PIOGLITAZONE HYDROCHLORIDE
     Indication: TYPE 2 DIABETES MELLITUS
     Dosage: 1 IN 1 D
     Dates: start: 20020715, end: 201110

REACTIONS (2)
  - Haematuria [None]
  - Bladder cancer [None]

NARRATIVE: CASE EVENT DATE: 201106
